FAERS Safety Report 6667117-2 (Version None)
Quarter: 2010Q2

REPORT INFORMATION
  Report Type: 
  Country: None (occurrence: None)
  Receive Date: 20100401
  Receipt Date: 20100325
  Transmission Date: 20101027
  Serious: Yes (Other)
  Sender: FDA-Public Use
  Company Number: 0912-SPO-VANT-0173

PATIENT
  Age: 10 Year
  Sex: Male
  Weight: 34.9 kg

DRUGS (2)
  1. VANTAS [Suspect]
     Indication: PRECOCIOUS PUBERTY
     Dosage: 1 IN 1 Y, SUB Q. IMPLANT
     Route: 058
     Dates: start: 20091117
  2. LUPRON [Concomitant]

REACTIONS (3)
  - DRUG DISPENSING ERROR [None]
  - MEDICATION ERROR [None]
  - WRONG DRUG ADMINISTERED [None]
